FAERS Safety Report 15840641 (Version 6)
Quarter: 2022Q1

REPORT INFORMATION
  Report Type: Other
  Country: US (occurrence: None)
  Receive Date: 20190118
  Receipt Date: 20220308
  Transmission Date: 20220423
  Serious: Yes (Other)
  Sender: FDA-Public Use
  Company Number: US-ROCHE-2246679

PATIENT
  Age: 47 Year
  Sex: Female
  Weight: 61.290 kg

DRUGS (12)
  1. OCREVUS [Suspect]
     Active Substance: OCRELIZUMAB
     Indication: Relapsing multiple sclerosis
     Dosage: 300MG ON DAY 1 AND DAY 15, DATE OF TREATMENT: 25/JAN/2019, 28/JUN/2019, 30/DEC/2019,
     Route: 042
     Dates: start: 20181228
  2. GABAPENTIN [Concomitant]
     Active Substance: GABAPENTIN
     Indication: Neuralgia
     Dosage: 100 MG AT NIGHT?30DAYS FOR TOTAL
     Route: 048
     Dates: start: 20200521
  3. AMPYRA [Concomitant]
     Active Substance: DALFAMPRIDINE
  4. ZYRTEC (UNITED STATES) [Concomitant]
     Route: 048
  5. LEVOTHYROXINE [Concomitant]
     Active Substance: LEVOTHYROXINE
     Dosage: 88 MCG
     Route: 048
  6. DALFAMPRIDINE [Concomitant]
     Active Substance: DALFAMPRIDINE
     Route: 048
     Dates: start: 20200123
  7. MODAFINIL [Concomitant]
     Active Substance: MODAFINIL
     Route: 048
  8. VITAMIN C [Concomitant]
     Active Substance: ASCORBIC ACID
     Route: 048
  9. ZYRTEC (UNITED STATES) [Concomitant]
  10. VITAMIN D3 [Concomitant]
     Active Substance: CHOLECALCIFEROL
  11. SPIRIVA RESPIMAT [Concomitant]
     Active Substance: TIOTROPIUM BROMIDE
  12. ZINC [Concomitant]
     Active Substance: ZINC

REACTIONS (7)
  - Urinary tract infection [Recovered/Resolved]
  - Nasopharyngitis [Recovering/Resolving]
  - Oropharyngeal pain [Recovered/Resolved]
  - Nasal congestion [Recovering/Resolving]
  - Respiratory tract congestion [Recovered/Resolved]
  - Illness [Unknown]
  - Upper respiratory tract infection [Recovered/Resolved]

NARRATIVE: CASE EVENT DATE: 20190101
